FAERS Safety Report 5301792-X (Version None)
Quarter: 2007Q2

REPORT INFORMATION
  Report Type: 
  Country: None (occurrence: None)
  Receive Date: 20070416
  Receipt Date: 20070416
  Transmission Date: 20071010
  Serious: Yes (Disabling)
  Sender: FDA-Public Use
  Company Number: None

PATIENT
  Age: 43 Year
  Sex: Female
  Weight: 145.151 kg

DRUGS (2)
  1. FENTANYL [Suspect]
     Indication: BACK PAIN
     Dosage: 150 MCG/HR   PAST YEAR
  2. FENTANYL [Suspect]
     Indication: BACK PAIN
     Dosage: TRANSDERMAL
     Route: 062

REACTIONS (1)
  - PHARMACEUTICAL PRODUCT COMPLAINT [None]
